FAERS Safety Report 22146079 (Version 1)
Quarter: 2023Q1

REPORT INFORMATION
  Report Type: Spontaneous
  Country: PL (occurrence: PL)
  Receive Date: 20230328
  Receipt Date: 20230328
  Transmission Date: 20230417
  Serious: Yes (Other)
  Sender: FDA-Public Use
  Company Number: PL-BAYER-2023A017838

PATIENT
  Age: 23 Year
  Sex: Female

DRUGS (3)
  1. DROSPIRENONE [Suspect]
     Active Substance: DROSPIRENONE
     Indication: Contraception
     Dosage: UNK
     Route: 048
     Dates: start: 2015
  2. DROSPIRENONE [Suspect]
     Active Substance: DROSPIRENONE
     Indication: Polycystic ovaries
     Dosage: UNK
     Route: 048
     Dates: start: 202209
  3. METFORMIN [Concomitant]
     Active Substance: METFORMIN HYDROCHLORIDE
     Dosage: UNK

REACTIONS (6)
  - Cystitis [Recovered/Resolved]
  - Hyperprolactinaemia [None]
  - Menstruation irregular [Recovered/Resolved]
  - Breast pain [Recovering/Resolving]
  - Insulin resistance [None]
  - Polycystic ovaries [None]

NARRATIVE: CASE EVENT DATE: 20220101
